FAERS Safety Report 6092512-2 (Version None)
Quarter: 2009Q1

REPORT INFORMATION
  Report Type: 
  Country: None (occurrence: None)
  Receive Date: 20090225
  Receipt Date: 20090220
  Transmission Date: 20090719
  Serious: Yes (Life-Threatening)
  Sender: FDA-Public Use
  Company Number: JP-BRISTOL-MYERS SQUIBB COMPANY-14518583

PATIENT
  Age: 66 Year
  Sex: Male
  Weight: 44 kg

DRUGS (7)
  1. ERBITUX [Suspect]
     Indication: COLORECTAL CANCER RECURRENT
     Dosage: 370MG
     Route: 042
     Dates: start: 20081118, end: 20081118
  2. POLARAMINE [Concomitant]
     Indication: PREMEDICATION
     Route: 042
  3. DECADRON [Concomitant]
     Indication: PREMEDICATION
     Route: 042
  4. OXYCONTIN [Concomitant]
     Indication: CANCER PAIN
     Dosage: TABS DOSE INCREASED TO 240MG
     Route: 048
     Dates: start: 20080424
  5. HYPEN [Concomitant]
     Indication: CANCER PAIN
     Dosage: TABS
     Route: 048
     Dates: start: 20080416
  6. RHYTHMY [Concomitant]
     Indication: INSOMNIA
     Dosage: TABS
     Route: 048
     Dates: start: 20080819
  7. FERROMIA [Concomitant]
     Indication: ANAEMIA
     Route: 048
     Dates: start: 20080819

REACTIONS (2)
  - DEMENTIA [None]
  - DISORIENTATION [None]
